FAERS Safety Report 20175348 (Version 2)
Quarter: 2021Q4

REPORT INFORMATION
  Report Type: Spontaneous
  Country: TW (occurrence: TW)
  Receive Date: 20211213
  Receipt Date: 20211213
  Transmission Date: 20220303
  Serious: Yes (Hospitalization, Other)
  Sender: FDA-Public Use
  Company Number: TW-LUPIN PHARMACEUTICALS INC.-2021-24355

PATIENT
  Age: 52 Year
  Sex: Female

DRUGS (5)
  1. LURASIDONE [Interacting]
     Active Substance: LURASIDONE
     Indication: Depressive symptom
     Dosage: 10 MILLIGRAM, QD
     Route: 065
  2. LURASIDONE [Interacting]
     Active Substance: LURASIDONE
     Indication: Bipolar I disorder
     Dosage: 20 MILLIGRAM, QD (SLOWLY TITRATED TO 20 MG/D FOR 7 DAYS)
     Route: 065
  3. LURASIDONE [Interacting]
     Active Substance: LURASIDONE
     Dosage: 40 MILLIGRAM, QD
     Route: 065
  4. CARBAMAZEPINE [Interacting]
     Active Substance: CARBAMAZEPINE
     Indication: Affective disorder
     Dosage: 400 MILLIGRAM, QD
     Route: 065
  5. CARBAMAZEPINE [Interacting]
     Active Substance: CARBAMAZEPINE
     Indication: Bipolar I disorder
     Dosage: 200 MILLIGRAM, QD
     Route: 065

REACTIONS (5)
  - Hypokalaemia [Recovered/Resolved]
  - Water intoxication [Recovered/Resolved]
  - Hyponatraemia [Recovered/Resolved]
  - Polydipsia [Recovered/Resolved]
  - Drug interaction [Unknown]
